FAERS Safety Report 5335299-0 (Version None)
Quarter: 2007Q1

REPORT INFORMATION
  Report Type: 
  Country: None (occurrence: None)
  Receive Date: 20070308
  Receipt Date: 20070122
  Transmission Date: 20070707
  Serious: No
  Sender: FDA-Public Use
  Company Number: 2007-BP-01116PF

PATIENT
  Sex: 0

DRUGS (11)
  1. SPIRIVA [Suspect]
     Indication: ASTHMA
     Dosage: 18 MCG (18 MCG, 1 IN 1 D), IH
     Route: 055
     Dates: start: 20060101
  2. CHANTIX [Suspect]
     Dosage: 2 MG (1 MG, 2 IN 1 D),
  3. ALLEGRA [Concomitant]
  4. ADVAIR (SERETIDE [Concomitant]
  5. ALBUTEROL [Concomitant]
  6. CARDIZEM [Concomitant]
  7. DONNATAL [Concomitant]
  8. FORTEO [Concomitant]
  9. NITRO (GLYCERYL TRINITRATE) [Concomitant]
  10. NORFLEX [Concomitant]
  11. ASPIRIN [Concomitant]

REACTIONS (2)
  - FEELING JITTERY [None]
  - NIGHTMARE [None]
